FAERS Safety Report 9265829 (Version 2)
Quarter: 2013Q2

REPORT INFORMATION
  Report Type: Spontaneous
  Country: JP (occurrence: JP)
  Receive Date: 20130501
  Receipt Date: 20130606
  Transmission Date: 20140414
  Serious: Yes (Life-Threatening, Hospitalization, Disabling)
  Sender: FDA-Public Use
  Company Number: JP-GLAXOSMITHKLINE-B0885008A

PATIENT
  Age: 81 Year
  Sex: Male

DRUGS (3)
  1. ZOVIRAX [Suspect]
     Indication: HERPES SIMPLEX MENINGOENCEPHALITIS
     Dosage: 250MG TWICE PER DAY
     Route: 042
     Dates: start: 20130402, end: 20130404
  2. ROCEPHIN [Concomitant]
     Indication: MENINGOENCEPHALITIS BACTERIAL
     Dosage: 2G PER DAY
     Route: 042
     Dates: start: 20130402, end: 20130404
  3. ZYVOX [Concomitant]
     Indication: MENINGOENCEPHALITIS BACTERIAL
     Dosage: 600MG TWICE PER DAY
     Route: 042
     Dates: start: 20130403, end: 20130404

REACTIONS (7)
  - Altered state of consciousness [Not Recovered/Not Resolved]
  - Depressed level of consciousness [Unknown]
  - Toxic encephalopathy [Not Recovered/Not Resolved]
  - Renal failure [Recovering/Resolving]
  - Renal impairment [Unknown]
  - Renal impairment [Unknown]
  - Nervous system disorder [Unknown]
